FAERS Safety Report 7000597-1 (Version None)
Quarter: 2010Q3

REPORT INFORMATION
  Report Type: 
  Country: None (occurrence: None)
  Receive Date: 20100920
  Receipt Date: 20071030
  Transmission Date: 20110219
  Serious: Yes (Other)
  Sender: FDA-Public Use
  Company Number: US-ASTRAZENECA-2006UW23578

PATIENT
  Age: 44 Year
  Sex: Male
  Weight: 95.3 kg

DRUGS (12)
  1. SEROQUEL [Suspect]
     Indication: BIPOLAR DISORDER
     Route: 048
     Dates: start: 20020801, end: 20050101
  2. SEROQUEL [Suspect]
     Indication: DEPRESSION
     Route: 048
     Dates: start: 20020801, end: 20050101
  3. SEROQUEL [Suspect]
     Dosage: 25 MG - 300 MG
     Route: 048
     Dates: start: 20050603
  4. SEROQUEL [Suspect]
     Dosage: 25 MG - 300 MG
     Route: 048
     Dates: start: 20050603
  5. SEROQUEL [Suspect]
     Route: 048
     Dates: start: 20070328
  6. SEROQUEL [Suspect]
     Route: 048
     Dates: start: 20070328
  7. TRAZODONE HCL [Concomitant]
     Dosage: 50 MG - 100 MG
     Dates: start: 20041201
  8. PHENYTOIN [Concomitant]
     Dates: start: 20050103
  9. LEXAPRO [Concomitant]
     Dates: start: 20051215
  10. LEXAPRO [Concomitant]
     Dates: start: 20070103
  11. WELLBUTRIN [Concomitant]
     Dates: start: 20070112
  12. LISINOPRIL [Concomitant]
     Dates: start: 20050819

REACTIONS (2)
  - DIABETES MELLITUS [None]
  - DIABETIC COMA [None]
